FAERS Safety Report 20859569 (Version 3)
Quarter: 2022Q3

REPORT INFORMATION
  Report Type: Other
  Country: RU (occurrence: RU)
  Receive Date: 20220523
  Receipt Date: 20220804
  Transmission Date: 20221027
  Serious: Yes (Other)
  Sender: FDA-Public Use
  Company Number: RU-002147023-NVSC2022RU110016

PATIENT
  Sex: Female

DRUGS (1)
  1. OMALIZUMAB [Suspect]
     Active Substance: OMALIZUMAB
     Indication: Chronic spontaneous urticaria
     Dosage: 300 MG, Q4W (1ST INJECTION)
     Route: 058
     Dates: start: 201903

REACTIONS (2)
  - Chronic spontaneous urticaria [Not Recovered/Not Resolved]
  - Disease recurrence [Unknown]
